FAERS Safety Report 7059125-7 (Version None)
Quarter: 2010Q4

REPORT INFORMATION
  Report Type: 
  Country: None (occurrence: None)
  Receive Date: 20101025
  Receipt Date: 20101013
  Transmission Date: 20110411
  Serious: No
  Sender: FDA-Public Use
  Company Number: US-BIOGENIDEC-2010BI035970

PATIENT
  Age: 24 Year
  Sex: Female

DRUGS (1)
  1. TYSABRI [Suspect]
     Indication: CROHN'S DISEASE
     Route: 042
     Dates: start: 20100608, end: 20100812

REACTIONS (3)
  - FATIGUE [None]
  - FEELING ABNORMAL [None]
  - VISCERAL PAIN [None]
